FAERS Safety Report 20060927 (Version 7)
Quarter: 2022Q1

REPORT INFORMATION
  Report Type: Report from Study
  Country: GB (occurrence: GB)
  Receive Date: 20211112
  Receipt Date: 20220210
  Transmission Date: 20220424
  Serious: Yes (Hospitalization, Other)
  Sender: FDA-Public Use
  Company Number: GB-CELLTRION INC.-2021GB015113

PATIENT

DRUGS (51)
  1. TRASTUZUMAB [Suspect]
     Active Substance: TRASTUZUMAB
     Indication: HER2 positive breast cancer
     Dosage: 900 MG, EVERY 3 WEEKS (LOADING DOSE) (PHARMACEUTICAL DOSE FORM: 230)
     Route: 042
     Dates: start: 20160303, end: 20160303
  2. TRASTUZUMAB [Suspect]
     Active Substance: TRASTUZUMAB
     Dosage: 900 MG, EVERY 3 WEEKS (LOADING DOSE) (PHARMACEUTICAL DOSE FORM: 230)
     Route: 042
     Dates: start: 20160303, end: 20160303
  3. TRASTUZUMAB [Suspect]
     Active Substance: TRASTUZUMAB
     Dosage: 675 MG, EVERY 3 WEEKS (MAINTENANCE DOSES) (PHARMACEUTICAL DOSE FORM: 230)
     Route: 042
     Dates: start: 20160324, end: 20210119
  4. TRASTUZUMAB [Suspect]
     Active Substance: TRASTUZUMAB
     Dosage: 675 MG, EVERY 3 WEEKS (MAINTENANCE DOSES) (PHARMACEUTICAL DOSE FORM: 230)
     Route: 042
     Dates: start: 20160324, end: 20210119
  5. TRASTUZUMAB [Suspect]
     Active Substance: TRASTUZUMAB
     Indication: Product used for unknown indication
     Dosage: 600 MG, EVERY 3 WEEKS (PHARMACEUTICAL DOSE FORM: 231)
     Route: 058
     Dates: start: 20210514
  6. DOCETAXEL [Suspect]
     Active Substance: DOCETAXEL
     Indication: HER2 positive breast cancer
     Dosage: 148 MG, EVERY 3 WEEKS (CUMULATIVE DOSE TO FIRST REACTION: 77.52381MG)
     Route: 042
     Dates: start: 20160304, end: 20160617
  7. PERTUZUMAB [Suspect]
     Active Substance: PERTUZUMAB
     Indication: HER2 positive breast cancer
     Dosage: 840 MG, EVERY 3 WEEKS (LOADING DOSE) (PHARMACEUTICAL DOSE FORM: 230)
     Route: 042
     Dates: start: 20160303, end: 20160303
  8. PERTUZUMAB [Suspect]
     Active Substance: PERTUZUMAB
     Indication: Breast cancer metastatic
     Dosage: 840 MG, EVERY 3 WEEKS (LOADING DOSE) (PHARMACEUTICAL DOSE FORM: 230)
     Route: 042
     Dates: start: 20160303, end: 20160303
  9. PERTUZUMAB [Suspect]
     Active Substance: PERTUZUMAB
     Dosage: 420 MG, EVERY 3 WEEKS (DOSAGE TEXT: MAINTENANCE DOSE)
     Route: 042
     Dates: start: 20160324
  10. PERTUZUMAB [Suspect]
     Active Substance: PERTUZUMAB
     Dosage: 420 MG, EVERY 3 WEEKS (DOSAGE TEXT: MAINTENANCE DOSE)
     Route: 042
     Dates: start: 20160324
  11. ADO-TRASTUZUMAB EMTANSINE [Suspect]
     Active Substance: ADO-TRASTUZUMAB EMTANSINE
     Indication: HER2 positive breast cancer
     Dosage: UNK
     Route: 042
     Dates: start: 202102, end: 202104
  12. AMITRIPTYLINE [Concomitant]
     Active Substance: AMITRIPTYLINE
     Indication: Acetabulum fracture
     Dosage: 10 MG (PHARMACEUTICAL DOSE FORM: 245`)
     Route: 048
     Dates: start: 20170522
  13. AMITRIPTYLINE HYDROCHLORIDE [Concomitant]
     Active Substance: AMITRIPTYLINE HYDROCHLORIDE
     Indication: Acetabulum fracture
     Dosage: 10 MG, UNK (PHARMACEUTICAL DOSE FORM: 245)
     Route: 048
     Dates: start: 20170522
  14. ANUSOL HC [BENZYL BENZOATE;BISMUTH OXIDE;BISMUTH SUBGALLATE;HYDROCORTI [Concomitant]
     Dosage: 3 UNK, 1X/DAY
     Route: 061
     Dates: start: 20160324
  15. APIXABAN [Concomitant]
     Active Substance: APIXABAN
     Indication: Acetabulum fracture
     Dosage: 5 MG, QD  (PHARMACEUTICAL DOSE FORM: 245)
     Route: 048
     Dates: start: 20170512
  16. CALCIUM\CHOLECALCIFEROL [Concomitant]
     Active Substance: CALCIUM\CHOLECALCIFEROL
     Dosage: 2 DF, QD (PHARMACEUTICAL DOSE FORM: 245)
     Route: 048
     Dates: start: 20160225
  17. NEOMYCIN SULFATE [Concomitant]
     Active Substance: NEOMYCIN SULFATE
     Dosage: 2 UNK, QD (OINTMENT, CHLORHEXIDINE HYDROCHLORIDE 0.1% AND NEOMYCIN SULPHATE 0.5%) (PHARMACEUTICAL DO
     Route: 061
     Dates: start: 20160324
  18. CHLORHEXIDINE HYDROCHLORIDE [Concomitant]
     Active Substance: CHLORHEXIDINE HYDROCHLORIDE
     Dosage: 2 UNK, 1X/DAY (PHARMACEUTICAL DOSE FORM: 17)
     Route: 061
     Dates: start: 20160324
  19. COCODAMOL [Concomitant]
     Active Substance: ACETAMINOPHEN\CODEINE PHOSPHATE
     Dosage: 120 MG, QD (PHARMACEUTICAL DOSE FORM: 245)
     Route: 048
     Dates: end: 201603
  20. COCODAMOL [Concomitant]
     Active Substance: ACETAMINOPHEN\CODEINE PHOSPHATE
     Dosage: 120 MG, QD (PHARMACEUTICAL DOSE FORM: 245)
     Route: 048
     Dates: end: 201603
  21. COCODAMOL [Concomitant]
     Active Substance: ACETAMINOPHEN\CODEINE PHOSPHATE
     Dosage: 90 MG, QD (PHARMACEUTICAL DOSE FORM: 245)
     Route: 048
     Dates: start: 20160912
  22. COCODAMOL [Concomitant]
     Active Substance: ACETAMINOPHEN\CODEINE PHOSPHATE
     Dosage: 90 MG, QD (PHARMACEUTICAL DOSE FORM: 245)
     Route: 048
     Dates: start: 20160912
  23. COCODAMOL [Concomitant]
     Active Substance: ACETAMINOPHEN\CODEINE PHOSPHATE
     Dosage: 120 MG, QD (PHARMACEUTICAL DOSE FORM: 245)
     Route: 048
     Dates: end: 2016
  24. CODEINE PHOSPHATE [Concomitant]
     Active Substance: CODEINE PHOSPHATE
     Dosage: 90 MG, 1X/DAY (PHARMACEUTICAL DOSE FORM: 245)
     Route: 048
     Dates: start: 20160912
  25. DENOSUMAB [Concomitant]
     Active Substance: DENOSUMAB
     Indication: Bone disorder
     Dosage: 120 MG, ONCE/ MINUTE
     Route: 058
     Dates: start: 20160226
  26. DEXAMETHASONE [Concomitant]
     Active Substance: DEXAMETHASONE
     Indication: Premedication
     Dosage: 16 MG, QD (PHARMACEUTICAL DOSE FORM: 245)
     Route: 048
     Dates: start: 20160302
  27. DICLOFENAC SODIUM [Concomitant]
     Active Substance: DICLOFENAC SODIUM
     Dosage: 1 % (PHARMACEUTICAL DOSE FORM: 95)
     Route: 061
     Dates: start: 20161220
  28. DOMPERIDONE [Concomitant]
     Active Substance: DOMPERIDONE
     Dosage: 10 MG (PHARMACEUTICAL DOSE FORM: 245)
     Route: 048
     Dates: start: 20160302
  29. IBUPROFEN [Concomitant]
     Active Substance: IBUPROFEN
     Dosage: 1600 MG, QD (PHARMACEUTICAL DOSE FORM: 245)
     Route: 048
  30. LANSOPRAZOLE [Concomitant]
     Active Substance: LANSOPRAZOLE
     Indication: Prophylaxis
     Dosage: 30 UG (PHARMACEUTICAL DOSE FORM: 5)
     Route: 048
     Dates: start: 20160324
  31. LIDOCAINE [Concomitant]
     Active Substance: LIDOCAINE
     Dosage: 700 MG, 1X/DAY
     Route: 062
     Dates: start: 20160307
  32. LOPERAMIDE [Concomitant]
     Active Substance: LOPERAMIDE
     Indication: Prophylaxis
     Dosage: 2 MG, UNK (DOSE FORM: 245)
     Route: 048
     Dates: start: 20160302
  33. LOSARTAN POTASSIUM [Concomitant]
     Active Substance: LOSARTAN POTASSIUM
     Dosage: 50 MG, QD (PHARMACEUTICAL DOSE FORM: 245)
     Route: 048
     Dates: start: 20160506
  34. MENTHOL [Concomitant]
     Active Substance: MENTHOL
     Dosage: 6 %, QD (PHARMACEUTICAL DOSE FORM: 17)
     Route: 061
     Dates: start: 20160307
  35. METFORMIN [Concomitant]
     Active Substance: METFORMIN HYDROCHLORIDE
     Dosage: 850 MG, UNK (PHARMACEUTICAL DOSE FORM: 245)
     Route: 048
  36. NAPROXEN [Concomitant]
     Active Substance: NAPROXEN
     Dosage: 1500 MG, QD (PHARMACEUTICAL DOSE FORM: 245)
     Route: 048
  37. ORAMORPH SR SUSTAINED RELEASE [Concomitant]
     Active Substance: MORPHINE SULFATE
     Dosage: 10 MG
     Route: 048
  38. ORAMORPH SR SUSTAINED RELEASE [Concomitant]
     Active Substance: MORPHINE SULFATE
     Dosage: 10 MG
     Route: 048
  39. OXYCODONE [Concomitant]
     Active Substance: OXYCODONE
     Dosage: 15 MG (PHARMACEUTICAL DOSE FORM: 245)
     Route: 048
     Dates: start: 20170512
  40. OXYCODONE [Concomitant]
     Active Substance: OXYCODONE
     Dosage: 10 MG (PHARMACEUTICAL DOSE FORM: 245)
     Route: 048
     Dates: start: 20170512
  41. ACETAMINOPHEN [Concomitant]
     Active Substance: ACETAMINOPHEN
     Dosage: 3 G, QD (PHARMACEUTICAL DOSE FORM: 245)
     Route: 048
     Dates: start: 20160316, end: 20160415
  42. PEGFILGRASTIM [Concomitant]
     Active Substance: PEGFILGRASTIM
     Dosage: 6 MG, UNK
     Route: 058
     Dates: start: 20160302
  43. PREGABALIN [Concomitant]
     Active Substance: PREGABALIN
     Dosage: 150 MG, QD (PHARMACEUTICAL DOSE FORM: 245)
     Route: 048
     Dates: start: 20160307, end: 20170516
  44. PREGABALIN [Concomitant]
     Active Substance: PREGABALIN
     Dosage: 150 MG, QD (PHARMACEUTICAL DOSE FORM: 245)
     Route: 048
     Dates: start: 20160307
  45. PREGABALIN [Concomitant]
     Active Substance: PREGABALIN
     Dosage: 150 MG, QD (PHARMACEUTICAL DOSE FORM: 245)
     Route: 048
     Dates: start: 20160307
  46. PREGABALIN [Concomitant]
     Active Substance: PREGABALIN
     Dosage: 150 MG, QD (75 MG, 2X/DAY) (PHARMACEUTICAL DOSE FORM: 245)
     Route: 048
     Dates: start: 20160307
  47. PREGABALIN [Concomitant]
     Active Substance: PREGABALIN
     Dosage: 150 MG, QD (75 MG, 2X/DAY) (PHARMACEUTICAL DOSE FORM: 245)
     Route: 048
     Dates: start: 20160307
  48. PREGABALIN [Concomitant]
     Active Substance: PREGABALIN
     Dosage: 450 MG, QD (PHARMACEUTICAL DOSE FORM: 245)
     Route: 048
     Dates: start: 20170516
  49. PREGABALIN [Concomitant]
     Active Substance: PREGABALIN
     Dosage: 450 MG, QD, 225 MG, 2X/DAY (PHARMACEUTICAL DOSE FORM: 245)
     Route: 048
     Dates: start: 20170516
  50. PREGABALIN [Concomitant]
     Active Substance: PREGABALIN
     Dosage: 450 MG, QD, 225 MG, 2X/DAY (PHARMACEUTICAL DOSE FORM: 245)
     Route: 048
     Dates: start: 20170516
  51. MORPHINE SULFATE [Concomitant]
     Active Substance: MORPHINE SULFATE
     Dosage: 20 MG, QD (PHARMACEUTICAL DOSE FORM: 5)
     Route: 048
     Dates: start: 20160311

REACTIONS (11)
  - Autonomic neuropathy [Recovered/Resolved]
  - Hypokalaemia [Recovered/Resolved]
  - Sciatica [Recovered/Resolved]
  - Nail bed tenderness [Recovered/Resolved]
  - Dysuria [Recovered/Resolved]
  - Skin discolouration [Not Recovered/Not Resolved]
  - Localised infection [Recovered/Resolved]
  - Anaemia [Recovered/Resolved]
  - Neuropathy peripheral [Not Recovered/Not Resolved]
  - Diarrhoea [Recovered/Resolved]
  - Fatigue [Recovered/Resolved]

NARRATIVE: CASE EVENT DATE: 20160315
